FAERS Safety Report 4485276-7 (Version None)
Quarter: 2004Q4

REPORT INFORMATION
  Report Type: 
  Country: None (occurrence: None)
  Receive Date: 20041026
  Receipt Date: 20041019
  Transmission Date: 20050328
  Serious: Yes (Hospitalization)
  Sender: FDA-Public Use
  Company Number: 200420443GDDC

PATIENT
  Age: 69 Year
  Sex: Male
  Weight: 73 kg

DRUGS (2)
  1. DOCETAXEL [Suspect]
     Indication: PROSTATE CANCER METASTATIC
     Dosage: DOSE: 35 MG/M2 DAILY X5 DAYS, THEN BI-WEEKLY
     Route: 041
     Dates: start: 20041004, end: 20041004
  2. ARSENIC TRIOXIDE [Suspect]
     Indication: PROSTATE CANCER METASTATIC
     Dosage: DOSE: 18.25 QD X5 DAYS (LOADING DOSE, THE BIWEEKLY
     Route: 041
     Dates: start: 20041004, end: 20041004

REACTIONS (2)
  - ELECTROCARDIOGRAM REPOLARISATION ABNORMALITY [None]
  - HYPOKALAEMIA [None]
